FAERS Safety Report 8004118-6 (Version None)
Quarter: 2011Q4

REPORT INFORMATION
  Report Type: 
  Country: None (occurrence: None)
  Receive Date: 20111222
  Receipt Date: 20111216
  Transmission Date: 20120403
  Serious: Yes (Life-Threatening, Other)
  Sender: FDA-Public Use
  Company Number: US-ASTRAZENECA-2011SE70638

PATIENT
  Age: 33 Year
  Sex: Male
  Weight: 81.6 kg

DRUGS (8)
  1. SEROQUEL [Suspect]
     Indication: MAJOR DEPRESSION
     Route: 048
  2. PAIN MEDICINE [Concomitant]
  3. SEROQUEL [Suspect]
     Route: 048
     Dates: start: 20110901
  4. SEROQUEL [Suspect]
     Route: 048
     Dates: start: 20110901
  5. SEROQUEL [Suspect]
     Route: 048
  6. SEROQUEL [Suspect]
     Route: 048
  7. SEROQUEL [Suspect]
     Indication: DEPRESSION
     Route: 048
  8. REMERON [Concomitant]

REACTIONS (4)
  - SUICIDE ATTEMPT [None]
  - DEPRESSION [None]
  - ANHEDONIA [None]
  - DRUG DOSE OMISSION [None]
